FAERS Safety Report 9800578 (Version 1)
Quarter: 2014Q1

REPORT INFORMATION
  Report Type: Report from Study
  Country: US (occurrence: US)
  Receive Date: 20140107
  Receipt Date: 20140107
  Transmission Date: 20141002
  Serious: Yes (Death)
  Sender: FDA-Public Use
  Company Number: US-ROCHE-1325171

PATIENT
  Age: 44 Year
  Sex: Male

DRUGS (20)
  1. AVASTIN [Suspect]
     Indication: RECTAL CANCER
     Route: 042
     Dates: start: 201103
  2. AVASTIN [Suspect]
     Route: 042
     Dates: start: 20120118
  3. AVASTIN [Suspect]
     Route: 042
     Dates: start: 20120213
  4. AVASTIN [Suspect]
     Route: 042
     Dates: start: 20120327
  5. XELODA [Suspect]
     Indication: RECTAL CANCER
     Route: 065
     Dates: start: 201103
  6. XELODA [Suspect]
     Route: 065
     Dates: start: 20120118
  7. OXALIPLATIN [Concomitant]
     Route: 065
     Dates: start: 201103
  8. LEUCOVORIN CALCIUM [Concomitant]
     Dosage: CYCLE 1 DAY 1
     Route: 041
     Dates: start: 20120118
  9. 5-FU [Concomitant]
     Route: 041
     Dates: start: 20120118
  10. 5-FU [Concomitant]
     Route: 041
     Dates: start: 20120118
  11. IRINOTECAN [Concomitant]
     Route: 042
     Dates: start: 20120118
  12. LEVOLEUCOVORIN CALCIUM [Concomitant]
     Route: 042
     Dates: start: 20120118
  13. GRANISETRON HYDROCHLORIDE [Concomitant]
     Route: 042
  14. DEXAMETHASONE SODIUM PHOSPHATE [Concomitant]
     Route: 042
     Dates: start: 20120118
  15. ATROPINE SULFATE [Concomitant]
     Route: 042
     Dates: start: 20120118
  16. OXYCONTIN [Concomitant]
     Indication: PAIN
     Route: 065
  17. HYDROCODONE BITARTRATE/ACETAMINOPHEN [Concomitant]
     Indication: PAIN
  18. TEMAZEPAM CAPSULES [Concomitant]
     Route: 048
  19. CLARITIN [Concomitant]
     Route: 048
  20. INDOMETHACIN [Concomitant]
     Route: 048

REACTIONS (7)
  - Death [Fatal]
  - Fatigue [Unknown]
  - Pain [Unknown]
  - Diarrhoea [Unknown]
  - Nausea [Unknown]
  - Metastatic neoplasm [Unknown]
  - Nausea [Unknown]
